FAERS Safety Report 14163930 (Version 5)
Quarter: 2018Q2

REPORT INFORMATION
  Report Type: Report from Study
  Country: IL (occurrence: IL)
  Receive Date: 20171107
  Receipt Date: 20180502
  Transmission Date: 20180711
  Serious: Yes (Other)
  Sender: FDA-Public Use
  Company Number: IL-ROCHE-2015121

PATIENT
  Age: 55 Year
  Sex: Female
  Weight: 84 kg

DRUGS (13)
  1. VEMURAFENIB. [Suspect]
     Active Substance: VEMURAFENIB
     Indication: METASTATIC MALIGNANT MELANOMA
     Dosage: DATE OF MOST RECENT DOSE OF VEMURAFENIB PRIOR TO SAE ONSET 23/OCT/2017 (4DF)
     Route: 048
     Dates: start: 20170925
  2. NEOBLOC [Concomitant]
     Indication: HYPERTENSION
     Route: 048
  3. MICROPIRIN [Concomitant]
     Active Substance: ASPIRIN
     Indication: MYOCARDIAL ISCHAEMIA
     Route: 048
  4. LIPITOR [Concomitant]
     Active Substance: ATORVASTATIN CALCIUM
     Indication: HYPERLIPIDAEMIA
     Route: 048
  5. LOSARTAN POTASSIUM AND HYDROCHLOROTHIAZIDE [Concomitant]
     Active Substance: HYDROCHLOROTHIAZIDE\LOSARTAN POTASSIUM
     Indication: MYOCARDIAL ISCHAEMIA
     Route: 048
  6. COBIMETINIB. [Suspect]
     Active Substance: COBIMETINIB
     Indication: METASTATIC MALIGNANT MELANOMA
     Dosage: ON 15/OCT/2017, DOSE OF LAST COBIMETINIB ADMINISTERED PRIOR TO SAE ONSET 20 MG
     Route: 048
     Dates: start: 20170925
  7. CIPRALEX [Concomitant]
     Active Substance: ESCITALOPRAM OXALATE
     Indication: MOOD SWINGS
     Route: 048
     Dates: start: 201710
  8. IMODIUM [Concomitant]
     Active Substance: LOPERAMIDE HYDROCHLORIDE
     Indication: DIARRHOEA
     Route: 048
  9. AFLUMYCIN [Concomitant]
     Indication: RASH
     Route: 065
     Dates: start: 20171009, end: 20171023
  10. DERMOVAT [Concomitant]
     Active Substance: CLOBETASOL
     Indication: RASH
     Route: 065
     Dates: start: 20171009, end: 20171023
  11. GLUCOMIN [Concomitant]
     Active Substance: METFORMIN HYDROCHLORIDE
     Indication: DIABETES MELLITUS
     Route: 048
  12. PRAMIN (ISRAEL) [Concomitant]
     Active Substance: IMIPRAMINE
     Indication: NAUSEA
     Route: 048
     Dates: start: 20171121
  13. ATEZOLIZUMAB. [Suspect]
     Active Substance: ATEZOLIZUMAB
     Indication: METASTATIC MALIGNANT MELANOMA
     Dosage: ON 23/OCT/2017, DOSE OF LAST BLINDED ATEZOLIZUMAB ADMINISTERED PRIOR TO SAE ONSET
     Route: 042
     Dates: start: 20171023

REACTIONS (1)
  - Maculopathy [Not Recovered/Not Resolved]

NARRATIVE: CASE EVENT DATE: 20171026
